FAERS Safety Report 13694775 (Version 1)
Quarter: 2017Q2

REPORT INFORMATION
  Report Type: Spontaneous
  Country: US (occurrence: US)
  Receive Date: 20170627
  Receipt Date: 20170627
  Transmission Date: 20170830
  Serious: Yes (Other)
  Sender: FDA-Public Use
  Company Number: US-WARNER CHILCOTT-2012-004310

PATIENT
  Sex: Male

DRUGS (4)
  1. ACTONEL [Suspect]
     Active Substance: RISEDRONATE SODIUM
     Indication: OSTEOPOROSIS
     Dosage: UNK, UNKNOWN
     Route: 065
     Dates: start: 200312, end: 201010
  2. RECLAST [Suspect]
     Active Substance: ZOLEDRONIC ACID
     Indication: OSTEOPOROSIS
     Dosage: UNK UNK, UNKNOWN
     Route: 065
     Dates: start: 201010, end: 201107
  3. ACTONEL [Suspect]
     Active Substance: RISEDRONATE SODIUM
     Indication: OSTEOPOROSIS PROPHYLAXIS
  4. RECLAST [Suspect]
     Active Substance: ZOLEDRONIC ACID
     Indication: OSTEOPOROSIS PROPHYLAXIS

REACTIONS (10)
  - Femur fracture [Unknown]
  - Emotional distress [Unknown]
  - Fear of disease [Unknown]
  - Osteogenesis imperfecta [Unknown]
  - Quality of life decreased [Unknown]
  - Pain [Unknown]
  - Anxiety [Unknown]
  - Low turnover osteopathy [Unknown]
  - Stress fracture [Unknown]
  - Drug ineffective [Unknown]
